FAERS Safety Report 19591852 (Version 1)
Quarter: 2021Q3

REPORT INFORMATION
  Report Type: Report from Study
  Country: CH (occurrence: CH)
  Receive Date: 20210721
  Receipt Date: 20210721
  Transmission Date: 20211014
  Serious: Yes (Hospitalization)
  Sender: FDA-Public Use
  Company Number: CH-ROCHE-2588757

PATIENT
  Age: 77 Year
  Sex: Male
  Weight: 92 kg

DRUGS (21)
  1. TRIATEC (SWITZERLAND) [Concomitant]
     Indication: HYPERTENSION
     Dosage: TRIATEC 5/25MG
     Route: 048
     Dates: start: 2015
  2. SELIPRAN [Concomitant]
     Active Substance: PRAVASTATIN SODIUM
     Indication: HYPERCHOLESTEROLAEMIA
     Route: 048
     Dates: start: 20200405, end: 20200416
  3. JANUVIA [Concomitant]
     Active Substance: SITAGLIPTIN PHOSPHATE
     Indication: DIABETES MELLITUS
     Route: 048
     Dates: start: 20200403, end: 20210527
  4. BLINDED AFLIBERCEPT [Suspect]
     Active Substance: AFLIBERCEPT
     Indication: DIABETIC RETINAL OEDEMA
     Dosage: DATE OF MOST RECENT DOSE OF MASKED STUDY DRUG PRIOR TO AE ONSET: 23/MAR/2020 AT 15:05PM.
     Route: 050
     Dates: start: 20190715
  5. COVID?19 VACCINE [Concomitant]
     Indication: PROPHYLAXIS
     Route: 030
     Dates: start: 20210325, end: 20210325
  6. PRAVASTATIN. [Concomitant]
     Active Substance: PRAVASTATIN
     Indication: HYPERCHOLESTEROLAEMIA
     Route: 048
     Dates: start: 2015
  7. LANTUS [Concomitant]
     Active Substance: INSULIN GLARGINE
     Indication: DIABETES MELLITUS
     Dosage: 100E/ML
     Route: 062
     Dates: start: 2000, end: 20200402
  8. TORASEMIDE [Concomitant]
     Active Substance: TORSEMIDE
     Indication: HYPERTENSION
     Route: 048
     Dates: start: 2017
  9. PANTOPRAZOLE [Concomitant]
     Active Substance: PANTOPRAZOLE
     Dosage: 40
     Route: 048
     Dates: start: 2009
  10. ASPIRIN CARDIO [Concomitant]
     Active Substance: ASPIRIN
     Indication: CEREBROVASCULAR ACCIDENT
     Dosage: 100
     Route: 048
     Dates: start: 2015
  11. AMLODIPIN [Concomitant]
     Active Substance: AMLODIPINE BESYLATE
     Route: 048
     Dates: start: 20200402, end: 20200416
  12. JARDIANCE [Concomitant]
     Active Substance: EMPAGLIFLOZIN
     Indication: DIABETES MELLITUS
     Route: 048
     Dates: start: 2016
  13. SELIPRAN [Concomitant]
     Active Substance: PRAVASTATIN SODIUM
     Route: 048
     Dates: start: 20200402, end: 20200416
  14. KEVZARA [Concomitant]
     Active Substance: SARILUMAB
     Indication: ARTHRITIS
     Route: 058
     Dates: start: 20200921
  15. BLINDED FARICIMAB [Suspect]
     Active Substance: FARICIMAB
     Indication: DIABETIC RETINAL OEDEMA
     Dosage: DATE OF MOST RECENT DOSE OF MASKED STUDY DRUG PRIOR TO AE ONSET: 23/MAR/2020 AT 15:05 PM.
     Route: 050
     Dates: start: 20190715
  16. DIBASE [Concomitant]
     Active Substance: CHOLECALCIFEROL
     Route: 048
     Dates: start: 201807
  17. JANUMET [Concomitant]
     Active Substance: METFORMIN HYDROCHLORIDE\SITAGLIPTIN PHOSPHATE
     Indication: DIABETES MELLITUS
     Dosage: JANUMET 50/1000
     Route: 048
     Dates: start: 2000, end: 20200402
  18. PREDNISON [Concomitant]
     Active Substance: PREDNISONE
     Indication: GOUT
     Route: 048
     Dates: start: 20200515, end: 20200519
  19. PREDNISOLON [Concomitant]
     Active Substance: PREDNISOLONE
     Indication: ARTHRITIS
     Route: 048
     Dates: start: 20200902, end: 20201106
  20. NEBIVOLOL. [Concomitant]
     Active Substance: NEBIVOLOL
     Indication: HYPERTENSION
     Dosage: 5
     Route: 048
     Dates: start: 2015, end: 20200402
  21. VISCOTEARS [Concomitant]
     Active Substance: CARBOMER
     Route: 047
     Dates: start: 20190715

REACTIONS (1)
  - COVID-19 pneumonia [Recovered/Resolved]

NARRATIVE: CASE EVENT DATE: 20200402
